FAERS Safety Report 17209059 (Version 7)
Quarter: 2020Q3

REPORT INFORMATION
  Report Type: Spontaneous
  Country: NL (occurrence: NL)
  Receive Date: 20191227
  Receipt Date: 20200715
  Transmission Date: 20201102
  Serious: Yes (Hospitalization)
  Sender: FDA-Public Use
  Company Number: NL-MYLANLABS-2019M1128221

PATIENT
  Age: 54 Year
  Sex: Female
  Weight: 84.5 kg

DRUGS (24)
  1. METFORMIN [Suspect]
     Active Substance: METFORMIN HYDROCHLORIDE
     Indication: DIABETES MELLITUS
     Dosage: 1000 MILLIGRAM, BID
     Route: 048
     Dates: start: 2001, end: 20160803
  2. DOCOSAHEXANOIC ACID W/EICOSAPENTAENOIC ACID [Suspect]
     Active Substance: DOCONEXENT\ICOSAPENT
     Dosage: 4 GRAM, QD
     Route: 048
     Dates: start: 20161026, end: 20170216
  3. DOCOSAHEXANOIC ACID W/EICOSAPENTAENOIC ACID [Suspect]
     Active Substance: DOCONEXENT\ICOSAPENT
     Dosage: 4 GRAM, QD
     Route: 048
     Dates: start: 20190827, end: 20190830
  4. FISH OIL [Concomitant]
     Active Substance: FISH OIL
     Dosage: 4 GRAM, QD
     Route: 048
     Dates: start: 20150827, end: 20160130
  5. METFORMIN [Suspect]
     Active Substance: METFORMIN HYDROCHLORIDE
     Dosage: 1000 MILLIGRAM, Q8H
     Route: 048
     Dates: start: 20190819, end: 20190824
  6. METFORMIN [Suspect]
     Active Substance: METFORMIN HYDROCHLORIDE
     Dosage: 500 MILLIGRAM, BID, 12 HRS
     Route: 048
     Dates: start: 20160804, end: 20170406
  7. DOCOSAHEXANOIC ACID W/EICOSAPENTAENOIC ACID [Suspect]
     Active Substance: DOCONEXENT\ICOSAPENT
     Dosage: 4 GRAM, QD
     Route: 048
     Dates: start: 20150827, end: 20160630
  8. HYDROCHLOORTHIAZIDE [Concomitant]
     Active Substance: HYDROCHLOROTHIAZIDE
     Dosage: 13 MILLIGRAM, QD
     Route: 048
     Dates: start: 20160427, end: 20190901
  9. METFORMIN [Suspect]
     Active Substance: METFORMIN HYDROCHLORIDE
     Dosage: 500 MILLIGRAM, Q8H
     Route: 048
     Dates: start: 20170407, end: 20180121
  10. DAPAGLIFLOZINE [Suspect]
     Active Substance: DAPAGLIFLOZIN
     Dosage: 10 MILLIGRAM, QD
     Route: 048
     Dates: start: 20190820, end: 20190824
  11. DAPAGLIFLOZINE [Suspect]
     Active Substance: DAPAGLIFLOZIN
     Dosage: 10 MILLIGRAM, QD
     Route: 048
     Dates: start: 20170510, end: 20190701
  12. DOCOSAHEXANOIC ACID W/EICOSAPENTAENOIC ACID [Suspect]
     Active Substance: DOCONEXENT\ICOSAPENT
     Indication: HYPERTRIGLYCERIDAEMIA
     Dosage: 4 GRAM, QD
     Route: 048
     Dates: start: 20160708, end: 20161005
  13. DOCOSAHEXANOIC ACID W/EICOSAPENTAENOIC ACID [Suspect]
     Active Substance: DOCONEXENT\ICOSAPENT
     Dosage: 4 GRAM, QD
     Route: 048
     Dates: start: 20170803, end: 20190824
  14. DOCOSAHEXANOIC ACID W/EICOSAPENTAENOIC ACID [Suspect]
     Active Substance: DOCONEXENT\ICOSAPENT
     Dosage: 4 GRAM, QD
     Route: 048
     Dates: start: 20170803, end: 20190823
  15. FISH OIL [Concomitant]
     Active Substance: FISH OIL
     Dosage: 4 GRAM, QD
     Route: 048
     Dates: start: 20161026, end: 20170216
  16. METFORMIN [Suspect]
     Active Substance: METFORMIN HYDROCHLORIDE
     Dosage: 1000 MILLIGRAM, Q8H
     Route: 048
     Dates: start: 20181206, end: 20190701
  17. DAPAGLIFLOZINE [Suspect]
     Active Substance: DAPAGLIFLOZIN
     Indication: DIABETES MELLITUS
     Dosage: 10 MILLIGRAM, QD
     Route: 048
     Dates: start: 20170710, end: 20190701
  18. FISH OIL [Concomitant]
     Active Substance: FISH OIL
     Dosage: 4 GRAM, QD
     Route: 048
     Dates: start: 20160708, end: 20161005
  19. METFORMIN [Suspect]
     Active Substance: METFORMIN HYDROCHLORIDE
     Dosage: 1000 MILLIGRAM, BID
     Route: 048
     Dates: start: 20180122, end: 20181205
  20. DOCOSAHEXANOIC ACID W/EICOSAPENTAENOIC ACID [Suspect]
     Active Substance: DOCONEXENT\ICOSAPENT
     Dosage: UNK
     Route: 048
     Dates: start: 20190920
  21. HYDROCHLOORTHIAZIDE [Concomitant]
     Active Substance: HYDROCHLOROTHIAZIDE
     Indication: HYPERTENSION
     Dosage: 13 MILLIGRAM, BID, 12 HRS
     Route: 048
     Dates: start: 20150715, end: 20160426
  22. ATORVASTATIN [Concomitant]
     Active Substance: ATORVASTATIN
     Indication: HYPERCHOLESTEROLAEMIA
     Dosage: 40 MILLIGRAM, QD
     Route: 048
     Dates: start: 201312
  23. FISH OIL [Concomitant]
     Active Substance: FISH OIL
     Dosage: 4 GRAM, QD
     Route: 048
     Dates: start: 20170803, end: 20190824
  24. FISH OIL [Concomitant]
     Active Substance: FISH OIL
     Dosage: 4 GRAM, QD
     Route: 048
     Dates: start: 20190827, end: 20190830

REACTIONS (2)
  - Ketoacidosis [Not Recovered/Not Resolved]
  - Diabetic ketoacidosis [Recovered/Resolved]

NARRATIVE: CASE EVENT DATE: 20190824
